FAERS Safety Report 9641600 (Version 4)
Quarter: 2014Q1

REPORT INFORMATION
  Report Type: Spontaneous
  Country: US (occurrence: US)
  Receive Date: 20131023
  Receipt Date: 20140129
  Transmission Date: 20141002
  Serious: Yes (Hospitalization)
  Sender: FDA-Public Use
  Company Number: US-GLAXOSMITHKLINE-A1046327A

PATIENT
  Age: 76 Year
  Sex: Female
  Weight: 71.8 kg

DRUGS (11)
  1. VOTRIENT [Suspect]
     Indication: FALLOPIAN TUBE CANCER
     Dosage: 800MG PER DAY
     Route: 048
     Dates: start: 20130908, end: 20130924
  2. DULCOLAX [Concomitant]
  3. KLONOPIN [Concomitant]
  4. ZOSTRIX [Concomitant]
  5. SENOKOT [Concomitant]
  6. UNISOM [Concomitant]
  7. MOTRIN [Concomitant]
  8. MAGNESIUM [Concomitant]
  9. PROTONIX [Concomitant]
  10. KCL [Concomitant]
  11. VITAMIN B COMPLEX [Concomitant]

REACTIONS (12)
  - Hepatic failure [Recovered/Resolved]
  - Vomiting [Recovered/Resolved]
  - Chills [Recovered/Resolved]
  - Hyperhidrosis [Recovered/Resolved]
  - Decreased appetite [Recovered/Resolved]
  - Tremor [Recovered/Resolved]
  - Disorientation [Recovered/Resolved]
  - Fatigue [Recovered/Resolved]
  - Blood test abnormal [Recovered/Resolved]
  - Nausea [Recovered/Resolved]
  - Asthenia [Recovered/Resolved]
  - Abdominal pain [Recovered/Resolved]
